FAERS Safety Report 16470413 (Version 1)
Quarter: 2019Q2

REPORT INFORMATION
  Report Type: Spontaneous
  Country: IT (occurrence: IT)
  Receive Date: 20190624
  Receipt Date: 20190624
  Transmission Date: 20190711
  Serious: Yes (Hospitalization)
  Sender: FDA-Public Use
  Company Number: IT-NORTHSTAR HEALTHCARE HOLDINGS-IT-2019NSR000126

PATIENT
  Age: 7 Year
  Weight: 18 kg

DRUGS (6)
  1. BACLOFEN. [Suspect]
     Active Substance: BACLOFEN
     Indication: QUADRIPLEGIA
     Dosage: 1700 ?G, QD
  2. BACLOFEN. [Suspect]
     Active Substance: BACLOFEN
     Dosage: 400 ?G, QD
  3. BACLOFEN. [Suspect]
     Active Substance: BACLOFEN
     Dosage: 1000 ?G, QD
  4. BACLOFEN. [Suspect]
     Active Substance: BACLOFEN
     Dosage: 500 ?G, QD
  5. BACLOFEN. [Suspect]
     Active Substance: BACLOFEN
     Dosage: 800 ?G, QD
  6. BACLOFEN. [Suspect]
     Active Substance: BACLOFEN
     Dosage: 700 ?G, QD

REACTIONS (1)
  - Neurotoxicity [Recovering/Resolving]
